FAERS Safety Report 7558029-0 (Version None)
Quarter: 2011Q2

REPORT INFORMATION
  Report Type: 
  Country: None (occurrence: None)
  Receive Date: 20110620
  Receipt Date: 20110608
  Transmission Date: 20111010
  Serious: Yes (Other)
  Sender: FDA-Public Use
  Company Number: PHHY2011TR50850

PATIENT
  Age: 5 Year
  Sex: Male

DRUGS (1)
  1. MYCOPHENOLATE MEFETIL [Suspect]
     Dosage: UNK

REACTIONS (5)
  - CSF PRESSURE INCREASED [None]
  - BENIGN INTRACRANIAL HYPERTENSION [None]
  - HEADACHE [None]
  - VOMITING [None]
  - PAPILLOEDEMA [None]
